FAERS Safety Report 8131767-7 (Version None)
Quarter: 2012Q1

REPORT INFORMATION
  Report Type: 
  Country: None (occurrence: None)
  Receive Date: 20120213
  Receipt Date: 20120208
  Transmission Date: 20120608
  Serious: Yes (Hospitalization)
  Sender: FDA-Public Use
  Company Number: CO-B.I. PHARMACEUTICALS,INC./RIDGEFIELD-2012-RA-00022RA

PATIENT
  Age: 75 Year
  Sex: Female

DRUGS (6)
  1. PRADAXA [Suspect]
     Indication: CEREBROVASCULAR ACCIDENT PROPHYLAXIS
     Dosage: 220 MG
     Route: 048
     Dates: start: 20100101, end: 20120201
  2. FUROSEMIDE [Concomitant]
     Indication: CONGESTIVE CARDIOMYOPATHY
  3. LEVOTHYROXINE SODIUM [Concomitant]
  4. SPIRONOLACTONE [Concomitant]
     Indication: CONGESTIVE CARDIOMYOPATHY
  5. CARVEDILOL [Concomitant]
     Indication: CONGESTIVE CARDIOMYOPATHY
  6. CARVEDILOL [Concomitant]
     Indication: HYPERTENSION

REACTIONS (1)
  - ISCHAEMIC STROKE [None]
